FAERS Safety Report 7607145-3 (Version None)
Quarter: 2011Q3

REPORT INFORMATION
  Report Type: 
  Country: None (occurrence: None)
  Receive Date: 20110713
  Receipt Date: 20110630
  Transmission Date: 20111222
  Serious: Yes (Hospitalization)
  Sender: FDA-Public Use
  Company Number: US-BAYER-201029749NA

PATIENT
  Age: 41 Year
  Sex: Female
  Weight: 113.38 kg

DRUGS (7)
  1. FLUOXETINE [Concomitant]
     Dosage: 20 MG, UNK
     Dates: start: 20080101
  2. EFFEXOR XR [Concomitant]
     Dosage: 75 MG, UNK
     Dates: start: 20080101
  3. MULTIVITAMINS AND IRON [Concomitant]
  4. YAZ [Suspect]
     Indication: MENSTRUATION IRREGULAR
     Dosage: UNK
     Route: 048
     Dates: start: 20080501, end: 20080701
  5. YAZ [Suspect]
     Indication: PREMENSTRUAL SYNDROME
  6. LOZOL [Concomitant]
     Dosage: 2.5 MG, UNK
     Dates: start: 20080101
  7. WELLBUTRIN [Concomitant]
     Dosage: UNK
     Dates: start: 20070101, end: 20080101

REACTIONS (2)
  - THROMBOSIS [None]
  - PULMONARY EMBOLISM [None]
